FAERS Safety Report 12374767 (Version 1)
Quarter: 2016Q2

REPORT INFORMATION
  Report Type: Spontaneous
  Country: US (occurrence: None)
  Receive Date: 20160516
  Receipt Date: 20160516
  Transmission Date: 20160815
  Serious: Yes (Other)
  Sender: FDA-Public Use
  Company Number: None

PATIENT
  Age: 31 Year
  Sex: Male
  Weight: 61.24 kg

DRUGS (1)
  1. PERIOGARD [Suspect]
     Active Substance: CHLORHEXIDINE GLUCONATE
     Indication: GINGIVAL DISORDER
     Route: 048
     Dates: start: 20160509, end: 20160512

REACTIONS (3)
  - Muscle tightness [None]
  - Gingival recession [None]
  - Mouth swelling [None]

NARRATIVE: CASE EVENT DATE: 20160513
